FAERS Safety Report 9863956 (Version 1)
Quarter: 2014Q1

REPORT INFORMATION
  Report Type: Spontaneous
  Country: AT (occurrence: AT)
  Receive Date: 20140203
  Receipt Date: 20140203
  Transmission Date: 20141002
  Serious: Yes (Other)
  Sender: FDA-Public Use
  Company Number: AT-TEVA-457402ISR

PATIENT
  Age: 82 Year
  Sex: Male

DRUGS (7)
  1. DONEPEZIL RATIOPHARM FILMTABLETTEN 5 MG 30 ST?CK [Suspect]
     Indication: DEMENTIA ALZHEIMER^S TYPE
     Dosage: 5 MILLIGRAM DAILY; ONE AT NOON
  2. AGOPTON 15 MG KAPSELN 28 ST?CK [Concomitant]
     Dosage: 15 MILLIGRAM DAILY; ONE IN THE MORNING
  3. NITROLINGUAL 0.4MG PUMPSPRAY 11.2 GRAM [Concomitant]
     Dosage: AS NEEDED
  4. THROMBO ASS 100 MG FILMTABLETTEN 100 ST?CK [Concomitant]
     Dosage: 100 MILLIGRAM DAILY; ONE AT NOON
  5. BISOPROLOL ARC FILMTABLETTEN 5 MG 50 ST?CK [Concomitant]
     Dosage: 5 MILLIGRAM DAILY; ONE IN THE MORNING
  6. NICOLAN TABLETTEN 10 MG 60 ST?CK [Concomitant]
     Dosage: 20 MILLIGRAM DAILY; ONE IN THE MORNING, ONE IN THE EVENING
  7. TAMSULOSIN HEXAL RETARD KAPSELN 0.4 MG 30 ST?CK [Concomitant]
     Dosage: .4 MILLIGRAM DAILY; ONE IN THE MORNING

REACTIONS (1)
  - Urinary retention [Unknown]
